FAERS Safety Report 25066240 (Version 2)
Quarter: 2025Q3

REPORT INFORMATION
  Report Type: Spontaneous
  Country: GE (occurrence: GE)
  Receive Date: 20250312
  Receipt Date: 20250809
  Transmission Date: 20251020
  Serious: Yes (Hospitalization, Other)
  Sender: ALEXION PHARMACEUTICALS
  Company Number: GE-HALEON-2231384

PATIENT
  Age: 58 Year
  Sex: Male

DRUGS (1)
  1. ESOMEPRAZOLE [Suspect]
     Active Substance: ESOMEPRAZOLE
     Indication: Drug provocation test

REACTIONS (5)
  - Angioedema [Unknown]
  - Urticaria [Unknown]
  - Hypotension [Unknown]
  - Dyspnoea [Unknown]
  - Drug hypersensitivity [Unknown]
